FAERS Safety Report 23504117 (Version 3)
Quarter: 2024Q3

REPORT INFORMATION
  Report Type: Spontaneous
  Country: AU (occurrence: AU)
  Receive Date: 20240209
  Receipt Date: 20240823
  Transmission Date: 20241016
  Serious: Yes (Hospitalization)
  Sender: GILEAD
  Company Number: AU-GLAXOSMITHKLINE-AU2024APC014298

PATIENT
  Age: 32 Year
  Sex: Female

DRUGS (6)
  1. AMBRISENTAN [Suspect]
     Active Substance: AMBRISENTAN
     Indication: Pulmonary arterial hypertension
     Dosage: 10 MG, QD
     Route: 048
  2. FLOLAN [Suspect]
     Active Substance: EPOPROSTENOL SODIUM
     Indication: Pulmonary arterial hypertension
     Dosage: 1.5 MG IN 100ML INFUSED AT
     Route: 042
     Dates: start: 201908
  3. SILDENAFIL [Concomitant]
     Active Substance: SILDENAFIL
     Indication: Product used for unknown indication
     Dosage: 20 MG, TID. 1/2 TABLET
     Route: 048
  4. XARELTO [Concomitant]
     Active Substance: RIVAROXABAN
     Indication: Product used for unknown indication
     Dosage: 20 MG, QD
     Route: 048
  5. REVATIO [Concomitant]
     Active Substance: SILDENAFIL CITRATE
     Indication: Product used for unknown indication
     Dosage: 20 MG, TID 1/2 TABLET
     Route: 048
  6. VELETRI [Concomitant]
     Active Substance: EPOPROSTENOL
     Indication: Product used for unknown indication
     Dosage: 1.5 MG IN 100ML INFUSED AT 2.5ML PER HOUR
     Dates: start: 20240806

REACTIONS (4)
  - Infection [Recovered/Resolved]
  - Pain in jaw [Unknown]
  - Dyspepsia [Unknown]
  - Headache [Unknown]

NARRATIVE: CASE EVENT DATE: 20231201
